FAERS Safety Report 5762423-8 (Version None)
Quarter: 2008Q2

REPORT INFORMATION
  Report Type: 
  Country: None (occurrence: None)
  Receive Date: 20080609
  Receipt Date: 20080529
  Transmission Date: 20081010
  Serious: Yes (Hospitalization, Other)
  Sender: FDA-Public Use
  Company Number: US-JNJFOC-20080600338

PATIENT
  Sex: Female
  Weight: 97.98 kg

DRUGS (4)
  1. FENTANYL TRANSDERMAL SYSTEM [Suspect]
     Route: 062
  2. FENTANYL TRANSDERMAL SYSTEM [Suspect]
     Route: 062
  3. FENTANYL TRANSDERMAL SYSTEM [Suspect]
     Indication: NEUROPATHY PERIPHERAL
     Route: 062
  4. ADRIAMYCIN PFS [Suspect]
     Indication: NEOPLASM MALIGNANT
     Route: 042

REACTIONS (8)
  - ANOREXIA [None]
  - CACHEXIA [None]
  - CARDIOMYOPATHY [None]
  - DEPRESSION [None]
  - EJECTION FRACTION DECREASED [None]
  - HOSTILITY [None]
  - SUICIDAL IDEATION [None]
  - WEIGHT DECREASED [None]
